FAERS Safety Report 24001392 (Version 1)
Quarter: 2024Q2

REPORT INFORMATION
  Report Type: Spontaneous
  Country: DZ (occurrence: DZ)
  Receive Date: 20240621
  Receipt Date: 20240621
  Transmission Date: 20240716
  Serious: Yes (Hospitalization, Other)
  Sender: FDA-Public Use
  Company Number: DZ-INSUD PHARMA-2406DZ04926

PATIENT

DRUGS (5)
  1. BETAMETHASONE [Suspect]
     Active Substance: BETAMETHASONE\BETAMETHASONE DIPROPIONATE
     Indication: Arthralgia
     Dosage: 7 MILLIGRAM PER MILLILITRE, INJECTION
     Route: 014
  2. CELECOXIB [Suspect]
     Active Substance: CELECOXIB
     Indication: Arthralgia
     Dosage: 200 MG X 2/D
     Route: 048
  3. PIROXICAM [Suspect]
     Active Substance: PIROXICAM
     Indication: Arthralgia
     Dosage: 20 MG 1 TAB/D
     Route: 048
  4. PREDNISOLONE [Suspect]
     Active Substance: PREDNISOLONE
     Indication: Arthralgia
     Dosage: 20 MG 1 TAB/D
     Route: 048
  5. LANSOPRAZOLE [Suspect]
     Active Substance: LANSOPRAZOLE
     Indication: Product used for unknown indication
     Dosage: UNK
     Route: 065

REACTIONS (9)
  - Angioedema [Recovering/Resolving]
  - Urticaria [Recovering/Resolving]
  - Anaphylactoid reaction [Recovering/Resolving]
  - Lip swelling [Recovering/Resolving]
  - Swelling of eyelid [Recovering/Resolving]
  - Rash pruritic [Recovering/Resolving]
  - Contraindicated product administered [Unknown]
  - Product prescribing issue [Unknown]
  - Inappropriate schedule of product administration [Unknown]
